FAERS Safety Report 9670233 (Version 1)
Quarter: 2013Q4

REPORT INFORMATION
  Report Type: Spontaneous
  Country: US (occurrence: None)
  Receive Date: 20131104
  Receipt Date: 20131104
  Transmission Date: 20140711
  Serious: Yes (Hospitalization)
  Sender: FDA-Public Use
  Company Number: SYM-2013-12113

PATIENT
  Sex: 0

DRUGS (1)
  1. DILTIAZEM [Suspect]
     Indication: PRODUCT USED FOR UNKNOWN INDICATION
     Route: 048

REACTIONS (15)
  - Heart rate decreased [None]
  - Respiratory rate decreased [None]
  - Heart rate decreased [None]
  - Blood pH decreased [None]
  - Blood lactic acid increased [None]
  - Blood bicarbonate decreased [None]
  - Blood creatinine increased [None]
  - Atrioventricular block first degree [None]
  - Blood glucose increased [None]
  - Blood pressure decreased [None]
  - Overdose [None]
  - Pulmonary oedema [None]
  - Generalised oedema [None]
  - Fluid overload [None]
  - Respiratory failure [None]
